FAERS Safety Report 26046362 (Version 1)
Quarter: 2025Q4

REPORT INFORMATION
  Report Type: Report from Study
  Country: JP (occurrence: JP)
  Receive Date: 20251114
  Receipt Date: 20251114
  Transmission Date: 20260117
  Serious: Yes (Hospitalization)
  Sender: SHIONOGI
  Company Number: JP-shionogi-202500011938

PATIENT
  Age: 85 Year
  Sex: Female
  Weight: 35 kg

DRUGS (9)
  1. CEFIDEROCOL [Suspect]
     Active Substance: CEFIDEROCOL
     Indication: Sepsis
     Route: 041
     Dates: start: 20240313, end: 20240313
  2. CEFIDEROCOL [Suspect]
     Active Substance: CEFIDEROCOL
     Indication: Urinary tract infection
     Route: 041
     Dates: start: 20240314, end: 20240328
  3. AZACTAM [Concomitant]
     Active Substance: AZTREONAM
     Indication: Sepsis
     Route: 065
     Dates: start: 20240228, end: 20240313
  4. AZACTAM [Concomitant]
     Active Substance: AZTREONAM
     Indication: Urinary tract infection
  5. AMIKACIN SULFATE [Concomitant]
     Active Substance: AMIKACIN SULFATE
     Indication: Sepsis
     Route: 065
     Dates: start: 20240226, end: 20240329
  6. AMIKACIN SULFATE [Concomitant]
     Active Substance: AMIKACIN SULFATE
     Indication: Urinary tract infection
  7. LANSOPRAZOLE [Concomitant]
     Active Substance: LANSOPRAZOLE
     Indication: Prophylaxis
     Route: 048
     Dates: start: 20240302
  8. MIYA-BM [Concomitant]
     Active Substance: CLOSTRIDIUM BUTYRICUM SPORES STRAIN M-55
     Indication: Product used for unknown indication
     Route: 048
     Dates: start: 20240302, end: 20240319
  9. HERBALS [Concomitant]
     Active Substance: HERBALS
     Indication: Prophylaxis
     Route: 048
     Dates: start: 20240306, end: 20240329

REACTIONS (2)
  - Bile duct stone [Recovering/Resolving]
  - Cholangitis [Recovering/Resolving]

NARRATIVE: CASE EVENT DATE: 20240410
